FAERS Safety Report 7990210-9 (Version None)
Quarter: 2011Q4

REPORT INFORMATION
  Report Type: 
  Country: None (occurrence: None)
  Receive Date: 20111219
  Receipt Date: 20111214
  Transmission Date: 20120403
  Serious: Yes (Other)
  Sender: FDA-Public Use
  Company Number: ES-PFIZER INC-2011305290

PATIENT

DRUGS (1)
  1. LYRICA [Suspect]
     Dosage: UNKNOWN

REACTIONS (1)
  - GASTRIC BYPASS [None]
